FAERS Safety Report 8479370-3 (Version None)
Quarter: 2012Q2

REPORT INFORMATION
  Report Type: 
  Country: None (occurrence: None)
  Receive Date: 20120629
  Receipt Date: 20120627
  Transmission Date: 20120825
  Serious: Yes (Hospitalization)
  Sender: FDA-Public Use
  Company Number: US-JNJFOC-20111111600

PATIENT
  Sex: Female
  Weight: 27.8 kg

DRUGS (3)
  1. REMICADE [Suspect]
     Indication: CROHN'S DISEASE
     Route: 042
     Dates: start: 20061101, end: 20090701
  2. HUMIRA [Concomitant]
     Dates: start: 20100501
  3. PREDNISONE TAB [Concomitant]

REACTIONS (1)
  - GROWTH RETARDATION [None]
